FAERS Safety Report 8113736-6 (Version None)
Quarter: 2012Q1

REPORT INFORMATION
  Report Type: 
  Country: None (occurrence: None)
  Receive Date: 20120203
  Receipt Date: 20120124
  Transmission Date: 20120608
  Serious: Yes (Life-Threatening, Hospitalization)
  Sender: FDA-Public Use
  Company Number: JP-JNJFOC-20091000663

PATIENT
  Sex: Male
  Weight: 65 kg

DRUGS (14)
  1. COLCHICINE [Concomitant]
     Indication: BEHCET'S SYNDROME
     Route: 048
     Dates: end: 20080328
  2. NEO-MINOPHAGEN C [Concomitant]
     Indication: PROPHYLAXIS
     Dates: start: 20071102, end: 20071102
  3. NEO-MINOPHAGEN C [Concomitant]
     Dates: start: 20071116, end: 20071116
  4. REMICADE [Suspect]
     Indication: UVEITIS
     Route: 042
     Dates: start: 20071102
  5. REMICADE [Suspect]
     Route: 042
     Dates: start: 20080617
  6. REMICADE [Suspect]
     Indication: BEHCET'S SYNDROME
     Route: 042
     Dates: start: 20071116
  7. NEORAL [Concomitant]
     Indication: BEHCET'S SYNDROME
     Route: 048
     Dates: start: 20071001
  8. PREDNISOLONE [Concomitant]
     Indication: BEHCET'S SYNDROME
     Route: 048
     Dates: end: 20080118
  9. PREDNISOLONE [Concomitant]
     Route: 048
     Dates: start: 20080329
  10. REMICADE [Suspect]
     Route: 042
     Dates: start: 20080617
  11. REMICADE [Suspect]
     Route: 042
     Dates: start: 20071102
  12. REMICADE [Suspect]
     Route: 042
     Dates: start: 20071116
  13. PREDNISOLONE [Concomitant]
     Route: 048
     Dates: start: 20080119, end: 20080328
  14. PENTASA [Concomitant]
     Indication: BEHCET'S SYNDROME
     Route: 048

REACTIONS (2)
  - NEOPLASM PROGRESSION [None]
  - LUNG SQUAMOUS CELL CARCINOMA STAGE UNSPECIFIED [None]
